FAERS Safety Report 8793220 (Version 5)
Quarter: 2013Q4

REPORT INFORMATION
  Report Type: Spontaneous
  Country: GB (occurrence: GB)
  Receive Date: 20120918
  Receipt Date: 20131016
  Transmission Date: 20140711
  Serious: Yes (Other)
  Sender: FDA-Public Use
  Company Number: GB-BRISTOL-MYERS SQUIBB COMPANY-16916363

PATIENT
  Age: 52 Year
  Sex: Female
  Weight: 48 kg

DRUGS (5)
  1. ADCORTYL INJ [Suspect]
     Indication: EPIDURAL ANALGESIA
     Route: 051
     Dates: start: 20120530, end: 20120530
  2. LEVOBUPIVACAINE [Suspect]
     Indication: SPINAL COLUMN INJURY
     Route: 008
     Dates: start: 20120530, end: 20120530
  3. LEVOBUPIVACAINE [Suspect]
     Indication: EPIDURAL ANALGESIA
     Route: 008
     Dates: start: 20120530, end: 20120530
  4. PARACETAMOL [Concomitant]
  5. SOLPADEINE [Concomitant]

REACTIONS (10)
  - Cauda equina syndrome [Not Recovered/Not Resolved]
  - Vision blurred [Not Recovered/Not Resolved]
  - Hypertension [Not Recovered/Not Resolved]
  - Hypersensitivity [Not Recovered/Not Resolved]
  - Pruritus generalised [Not Recovered/Not Resolved]
  - Dizziness [Not Recovered/Not Resolved]
  - Anxiety [Not Recovered/Not Resolved]
  - Insomnia [Not Recovered/Not Resolved]
  - Meningitis [Not Recovered/Not Resolved]
  - Abdominal pain upper [Recovered/Resolved]
